FAERS Safety Report 26061264 (Version 2)
Quarter: 2025Q4

REPORT INFORMATION
  Report Type: Spontaneous
  Country: US (occurrence: None)
  Receive Date: 20251118
  Receipt Date: 20251224
  Transmission Date: 20260118
  Serious: No
  Sender: ALKERMES
  Company Number: US-ALKERMES INC.-ALK-2025-003044

PATIENT
  Sex: Female
  Weight: 70.3 kg

DRUGS (20)
  1. VIVITROL [Suspect]
     Active Substance: NALTREXONE
     Indication: Alcoholism
     Dosage: 380 MILLIGRAM, QMO
  2. LIPITOR [Concomitant]
     Active Substance: ATORVASTATIN CALCIUM
     Indication: Product used for unknown indication
     Dosage: 80 MILLIGRAM, QAM
     Route: 061
  3. SYMBICORT [Concomitant]
     Active Substance: BUDESONIDE\FORMOTEROL FUMARATE DIHYDRATE
     Indication: Product used for unknown indication
     Dosage: 80-4.5 MICROGRAM, QH
  4. VITAMIN D3 [Concomitant]
     Active Substance: CHOLECALCIFEROL
     Indication: Product used for unknown indication
     Dosage: 25 MICROGRAM, QD
     Route: 061
  5. FOLVITE [Concomitant]
     Active Substance: FOLIC ACID
     Indication: Alcohol use disorder
     Dosage: 1 MILLIGRAM, QAM
     Route: 061
  6. FOLVITE [Concomitant]
     Active Substance: FOLIC ACID
     Indication: Sarcopenia
  7. XYZAL [Concomitant]
     Active Substance: LEVOCETIRIZINE DIHYDROCHLORIDE
     Indication: Product used for unknown indication
     Dosage: 5 MILLIGRAM, QH
     Route: 061
  8. LOPRESSOR [Concomitant]
     Active Substance: METOPROLOL TARTRATE
     Indication: Product used for unknown indication
     Dosage: 100 MILLIGRAM, QAM
     Route: 061
  9. VITAMINS [Concomitant]
     Active Substance: VITAMINS
     Indication: Product used for unknown indication
     Dosage: 18 MG IRON- 400 MCG-25 MCG, QD
     Route: 061
  10. ZOFRAN [Concomitant]
     Active Substance: ONDANSETRON HYDROCHLORIDE
     Indication: Nausea
     Dosage: 4 MILLIGRAM, Q8H, PRN
     Route: 061
  11. ZOFRAN [Concomitant]
     Active Substance: ONDANSETRON HYDROCHLORIDE
     Indication: Vomiting
  12. THIAMINE [Concomitant]
     Active Substance: THIAMINE
     Indication: Alcohol use disorder
     Dosage: 100 MILLIGRAM, QAM
     Route: 061
  13. THIAMINE [Concomitant]
     Active Substance: THIAMINE
     Indication: Sarcopenia
  14. ALFA-TOCOPHEROL [Concomitant]
     Indication: Product used for unknown indication
     Dosage: 400 UNIT, QD
     Route: 061
  15. TYLENOL [Concomitant]
     Active Substance: ACETAMINOPHEN
     Indication: Pain
     Dosage: 300- 30 MILLIGRAM, Q4H
     Route: 061
  16. LASIX [Concomitant]
     Active Substance: FUROSEMIDE
     Indication: Product used for unknown indication
     Dosage: 40 MILLIGRAM, QAM
     Route: 061
  17. DEPADE [Concomitant]
     Indication: Product used for unknown indication
     Dosage: 1.5 TAB, 50 MILLIGRAM, QD
     Route: 061
  18. BACLOFEN [Concomitant]
     Active Substance: BACLOFEN
     Indication: Alcohol use disorder
     Route: 065
  19. PROCARDIA [Concomitant]
     Active Substance: NIFEDIPINE
     Indication: Gastrooesophageal reflux disease
     Dosage: UNK, QD
     Route: 065
  20. UNSPECIFIED INGREDIENT [Concomitant]
     Active Substance: UNSPECIFIED INGREDIENT
     Indication: Product used for unknown indication
     Dosage: UNK
     Route: 065

REACTIONS (6)
  - Product administered at inappropriate site [Recovered/Resolved]
  - Hepatic cirrhosis [Unknown]
  - Erythema [Recovering/Resolving]
  - Alcohol use [Unknown]
  - Back pain [Recovering/Resolving]
  - Arthralgia [Recovering/Resolving]

NARRATIVE: CASE EVENT DATE: 20250101
